FAERS Safety Report 10143597 (Version 1)
Quarter: 2014Q2

REPORT INFORMATION
  Report Type: Spontaneous
  Country: US (occurrence: None)
  Receive Date: 20140429
  Receipt Date: 20140429
  Transmission Date: 20141212
  Serious: Yes (Hospitalization)
  Sender: FDA-Public Use
  Company Number: None

PATIENT
  Age: 55 Year
  Sex: Female
  Weight: 149.2 kg

DRUGS (5)
  1. IFOSFAMIDE [Suspect]
  2. PACLITAXEL(TAXOL) [Suspect]
  3. PEGFILGRASTIM(NEULASTA) [Suspect]
  4. DEXAMETHASONE [Concomitant]
  5. LOVENOX [Concomitant]

REACTIONS (10)
  - Anaemia [None]
  - Hyponatraemia [None]
  - Hypomagnesaemia [None]
  - Hypoalbuminaemia [None]
  - Hypophosphataemia [None]
  - Diabetes mellitus inadequate control [None]
  - Hypotension [None]
  - Cellulitis staphylococcal [None]
  - Wound infection [None]
  - Blister [None]
